FAERS Safety Report 21809678 (Version 7)
Quarter: 2023Q4

REPORT INFORMATION
  Report Type: Spontaneous
  Country: JP (occurrence: JP)
  Receive Date: 20230103
  Receipt Date: 20231013
  Transmission Date: 20240110
  Serious: Yes (Hospitalization, Other)
  Sender: FDA-Public Use
  Company Number: JP-BAXTER-2022BAX031869

PATIENT
  Age: 49 Year
  Sex: Female
  Weight: 53.7 kg

DRUGS (18)
  1. CYCLOPHOSPHAMIDE [Suspect]
     Active Substance: CYCLOPHOSPHAMIDE
     Dosage: 40 MG/KG/DAY, ADMINISTERED ONLY THIS DAY, DOSAGE FROM INJECTION
     Route: 065
     Dates: start: 20220502, end: 20220502
  2. TACROLIMUS [Concomitant]
     Active Substance: TACROLIMUS
     Indication: Immunosuppression
     Dosage: 2 MG, ONCE A DAY
     Route: 048
     Dates: start: 20221207
  3. TACROLIMUS [Concomitant]
     Active Substance: TACROLIMUS
     Dosage: 1 MG, ONCE A DAY
     Route: 048
     Dates: start: 20230308
  4. TACROLIMUS [Concomitant]
     Active Substance: TACROLIMUS
     Dosage: 1 MG, ONCE A DAY
     Route: 048
     Dates: start: 20230615
  5. WARFARIN [Concomitant]
     Active Substance: WARFARIN
     Indication: Thrombosis prophylaxis
     Dosage: 1.5 MG, ONCE A DAY
     Route: 048
     Dates: start: 20220501
  6. WARFARIN [Concomitant]
     Active Substance: WARFARIN
     Dosage: 1.5 MG/DAY
     Route: 048
     Dates: start: 20220810
  7. DIETARY SUPPLEMENT\PROBIOTICS [Concomitant]
     Active Substance: DIETARY SUPPLEMENT\PROBIOTICS NOS
     Indication: Dysbiosis
     Dosage: 1 DOSAGE FORM, EVERY 8 HOURS
     Route: 048
     Dates: start: 20220506
  8. SULFAMETHOXAZOLE\TRIMETHOPRIM [Concomitant]
     Active Substance: SULFAMETHOXAZOLE\TRIMETHOPRIM
     Indication: Infection prophylaxis
     Dosage: 1 DOSAGE FORM, ONCE A DAY
     Route: 048
     Dates: start: 20220629
  9. URSODIOL [Concomitant]
     Active Substance: URSODIOL
     Indication: Hepatic function abnormal
     Dosage: 600 MG/DAY
     Route: 048
     Dates: start: 20220429
  10. URSODIOL [Concomitant]
     Active Substance: URSODIOL
     Dosage: 200 MG, EVERY 8 HOURS
     Route: 048
     Dates: start: 20220429
  11. URSODIOL [Concomitant]
     Active Substance: URSODIOL
     Dosage: 300 MG, EVERY 8 HOURS
     Route: 048
     Dates: start: 20230118
  12. RABEPRAZOLE SODIUM [Concomitant]
     Active Substance: RABEPRAZOLE SODIUM
     Indication: Prophylaxis against gastrointestinal ulcer
     Dosage: 10 MG, ONCE A DAY
     Route: 048
     Dates: start: 20220509
  13. FLOPROPIONE [Concomitant]
     Active Substance: FLOPROPIONE
     Indication: Hypercholia
     Dosage: 240 MG/DAY
     Route: 048
     Dates: start: 20220617
  14. FLOPROPIONE [Concomitant]
     Active Substance: FLOPROPIONE
     Dosage: 80 MG, EVERY 8 HOURS
     Route: 048
     Dates: start: 20220617
  15. ASPIRIN [Concomitant]
     Active Substance: ASPIRIN
     Indication: Thrombosis prophylaxis
     Dosage: 100 MG, ONCE A DAY
     Route: 048
     Dates: start: 20220501
  16. MAGNESIUM OXIDE [Concomitant]
     Active Substance: MAGNESIUM OXIDE
     Indication: Hypermagnesaemia
     Dosage: 750 MG/DAY
     Route: 048
     Dates: start: 20220622
  17. MAGNESIUM OXIDE [Concomitant]
     Active Substance: MAGNESIUM OXIDE
     Indication: Constipation prophylaxis
     Dosage: 250 MG, EVERY 8 HOURS
     Route: 048
     Dates: start: 20220622
  18. FLUTICASONE FUROATE\VILANTEROL TRIFENATATE [Concomitant]
     Active Substance: FLUTICASONE FUROATE\VILANTEROL TRIFENATATE
     Indication: Asthma
     Dosage: 100 UG, ONCE A DAY (START DATE: 2020)
     Route: 065

REACTIONS (6)
  - Incarcerated hernia [Recovered/Resolved]
  - Diaphragmatic hernia [Recovered/Resolved]
  - Abdominal pain [Recovering/Resolving]
  - Bile duct stenosis [Recovering/Resolving]
  - Hepatic enzyme increased [Not Recovered/Not Resolved]
  - Pancreatitis [Unknown]

NARRATIVE: CASE EVENT DATE: 20221228
